FAERS Safety Report 11167167 (Version 2)
Quarter: 2015Q3

REPORT INFORMATION
  Report Type: Spontaneous
  Country: GB (occurrence: GB)
  Receive Date: 20150605
  Receipt Date: 20150715
  Transmission Date: 20151125
  Serious: Yes (Life-Threatening, Hospitalization)
  Sender: FDA-Public Use
  Company Number: GB-ASTRAZENECA-2015SE54620

PATIENT
  Age: 85 Year
  Sex: Female
  Weight: 95 kg

DRUGS (9)
  1. FORXIGA [Suspect]
     Active Substance: DAPAGLIFLOZIN
     Indication: TYPE 2 DIABETES MELLITUS
     Dosage: 10 MG, DAILY, UNIT 3
     Route: 048
     Dates: start: 201408, end: 201505
  2. CO-DYDRAMOL [Concomitant]
     Active Substance: ACETAMINOPHEN\DIHYDROCODEINE
  3. LOSARTAN. [Concomitant]
     Active Substance: LOSARTAN
     Dosage: PATIENT REFUSING SO STOPPED
  4. METFORMIN [Concomitant]
     Active Substance: METFORMIN HYDROCHLORIDE
     Dosage: 1 UNKNOWN, TWO TIMES A DAY, UNIT 3
  5. EZETIMIBE. [Concomitant]
     Active Substance: EZETIMIBE
     Dosage: PATIENT REFUSING SO STOPPED
  6. GLICLAZIDE [Concomitant]
     Active Substance: GLICLAZIDE
  7. NAPROXEN. [Concomitant]
     Active Substance: NAPROXEN
  8. TRAMADOL. [Concomitant]
     Active Substance: TRAMADOL
     Dosage: CHANGED FOR A FENTANYL PATCH
  9. AMITRIPTYLINE [Concomitant]
     Active Substance: AMITRIPTYLINE
     Dosage: CHANGED FOR A FENTANYL PATCH

REACTIONS (9)
  - Back pain [Unknown]
  - Sepsis [Unknown]
  - Polydipsia [Unknown]
  - Pyelonephritis [Unknown]
  - Diabetic ketoacidosis [Recovering/Resolving]
  - Polyuria [Unknown]
  - Staphylococcus test positive [Unknown]
  - Influenza like illness [Unknown]
  - Hypoglycaemia [Recovering/Resolving]

NARRATIVE: CASE EVENT DATE: 201505
